FAERS Safety Report 8740557 (Version 2)
Quarter: 2013Q1

REPORT INFORMATION
  Report Type: Spontaneous
  Country: US (occurrence: US)
  Receive Date: 20120823
  Receipt Date: 20130111
  Transmission Date: 20140127
  Serious: No
  Sender: FDA-Public Use
  Company Number: US-009507513-1208USA006579

PATIENT
  Age: 25 Year
  Sex: Female
  Weight: 124.26 kg

DRUGS (3)
  1. IMPLANON [Suspect]
     Indication: CONTRACEPTION
  2. COREG [Concomitant]
  3. LISINOPRIL [Concomitant]

REACTIONS (3)
  - Device breakage [Unknown]
  - Breast tenderness [Not Recovered/Not Resolved]
  - Abdominal tenderness [Not Recovered/Not Resolved]
